FAERS Safety Report 25880175 (Version 2)
Quarter: 2025Q4

REPORT INFORMATION
  Report Type: Spontaneous
  Country: US (occurrence: US)
  Receive Date: 20251004
  Receipt Date: 20251108
  Transmission Date: 20260117
  Serious: No
  Sender: SANOFI AVENTIS
  Company Number: US-SA-2025SA292660

PATIENT
  Age: 23 Year
  Sex: Female

DRUGS (3)
  1. DUPIXENT [Suspect]
     Active Substance: DUPILUMAB
     Indication: Dermatitis atopic
     Dosage: 300 MG, QOW
     Route: 058
     Dates: start: 202302
  2. DUPIXENT [Suspect]
     Active Substance: DUPILUMAB
     Indication: Dermatitis
  3. ADBRY [Concomitant]
     Active Substance: TRALOKINUMAB-LDRM
     Dosage: UNK

REACTIONS (5)
  - Dermatitis atopic [Unknown]
  - Pruritus [Not Recovered/Not Resolved]
  - Therapeutic response shortened [Unknown]
  - Rash [Recovering/Resolving]
  - Product use in unapproved indication [Unknown]

NARRATIVE: CASE EVENT DATE: 20230201
